FAERS Safety Report 17459858 (Version 1)
Quarter: 2020Q1

REPORT INFORMATION
  Report Type: Spontaneous
  Country: US (occurrence: US)
  Receive Date: 20200213
  Receipt Date: 20200213
  Transmission Date: 20200409
  Serious: No
  Sender: FDA-Public Use
  Company Number: None

PATIENT
  Sex: Female

DRUGS (1)
  1. HUMIRA [Suspect]
     Active Substance: ADALIMUMAB
     Indication: CROHN^S DISEASE
     Dosage: ?          OTHER STRENGTH:40MG/0.8ML;OTHER DOSE:40MG/0.8ML;?
     Route: 058
     Dates: start: 20180913

REACTIONS (9)
  - Erythema [None]
  - Urticaria [None]
  - Pyrexia [None]
  - Contusion [None]
  - Rash [None]
  - Pruritus [None]
  - Myalgia [None]
  - Chills [None]
  - Night sweats [None]
